FAERS Safety Report 9172134 (Version 1)
Quarter: 2013Q1

REPORT INFORMATION
  Report Type: Spontaneous
  Country: DK (occurrence: IT)
  Receive Date: 20130319
  Receipt Date: 20130319
  Transmission Date: 20140127
  Serious: Yes (Hospitalization)
  Sender: FDA-Public Use
  Company Number: IT-FRI-1000043368

PATIENT
  Age: 41 Year
  Sex: Female

DRUGS (6)
  1. ESCITALOPRAM [Suspect]
     Indication: MAJOR DEPRESSION
     Dosage: 20 MG
     Route: 048
  2. ESCITALOPRAM [Suspect]
     Dosage: 70 UNIT DOSE
     Dates: start: 20130225, end: 20130225
  3. DEPAKIN CHRONO [Suspect]
     Indication: MAJOR DEPRESSION
     Dosage: 500 MG
     Route: 048
  4. DEPAKIN CHRONO [Suspect]
     Dosage: 40 UNIT DOSE
     Dates: start: 20130225, end: 20130225
  5. TORVAST [Suspect]
     Dosage: 20 MG
     Route: 048
  6. TORVAST [Suspect]
     Dosage: 35 UNIT DOSE
     Dates: start: 20130225, end: 20130225

REACTIONS (5)
  - Intentional self-injury [Recovering/Resolving]
  - Electrocardiogram QT prolonged [Recovering/Resolving]
  - Hypotension [Recovering/Resolving]
  - Syncope [Recovering/Resolving]
  - Intentional overdose [Recovering/Resolving]
